FAERS Safety Report 24841839 (Version 1)
Quarter: 2025Q1

REPORT INFORMATION
  Report Type: Spontaneous
  Country: CA (occurrence: CA)
  Receive Date: 20250114
  Receipt Date: 20250114
  Transmission Date: 20250409
  Serious: Yes (Hospitalization)
  Sender: AMGEN
  Company Number: CA-AMGEN-CANSP2024257435

PATIENT

DRUGS (1)
  1. RITUXIMAB [Suspect]
     Active Substance: RITUXIMAB
     Indication: Product used for unknown indication
     Route: 065

REACTIONS (18)
  - Adverse drug reaction [Unknown]
  - Gastritis [Unknown]
  - Oesophagitis [Unknown]
  - Thrombosis [Unknown]
  - Embolism [Unknown]
  - Thrombophlebitis [Unknown]
  - Cerebral venous thrombosis [Unknown]
  - Febrile convulsion [Unknown]
  - Vasoplegia syndrome [Unknown]
  - Dermatitis contact [Unknown]
  - Anaphylactic shock [Unknown]
  - Anaphylactic reaction [Unknown]
  - Drug hypersensitivity [Unknown]
  - Rash erythematous [Unknown]
  - Febrile neutropenia [Unknown]
  - Hypotension [Unknown]
  - Vomiting [Unknown]
  - Off label use [Unknown]
